FAERS Safety Report 5212610-2 (Version None)
Quarter: 2006Q4

REPORT INFORMATION
  Report Type: 
  Country: None (occurrence: None)
  Receive Date: 20061102
  Receipt Date: 20060321
  Transmission Date: 20070319
  Serious: Yes (Other)
  Sender: FDA-Public Use
  Company Number: 26028

PATIENT
  Age: 83 Year
  Sex: Female
  Weight: 50.8029 kg

DRUGS (5)
  1. METHOTREXATE [Suspect]
     Indication: RHEUMATOID ARTHRITIS
     Dosage: 0.5ML/SQ/WEEKLY
     Dates: start: 19860101
  2. PREDNISONE [Concomitant]
  3. FOLIC ACID [Concomitant]
  4. LEVOTHYROXINE SODIUM [Concomitant]
  5. CALCIUM [Concomitant]

REACTIONS (1)
  - DISEASE PROGRESSION [None]
